FAERS Safety Report 5338060-6 (Version None)
Quarter: 2007Q2

REPORT INFORMATION
  Report Type: 
  Country: None (occurrence: None)
  Receive Date: 20070530
  Receipt Date: 20070521
  Transmission Date: 20071010
  Serious: Yes (Other)
  Sender: FDA-Public Use
  Company Number: AR-JNJFOC-20070505373

PATIENT
  Age: 32 Year
  Sex: Female
  Weight: 110 kg

DRUGS (6)
  1. TOPAMAC [Suspect]
     Indication: OVERWEIGHT
     Route: 065
  2. T4 [Concomitant]
     Route: 065
  3. METFORMIN HCL [Concomitant]
     Indication: GLUCOSE TOLERANCE IMPAIRED
     Route: 065
  4. VENLAFAXINE HCL [Concomitant]
     Indication: DRUG USE FOR UNKNOWN INDICATION
     Route: 065
  5. LAMOTRIGINE [Concomitant]
     Indication: BIPOLAR DISORDER
     Route: 065
  6. ROSIGLITAZONE [Concomitant]
     Indication: GLUCOSE TOLERANCE IMPAIRED
     Route: 065

REACTIONS (2)
  - BRONCHOSPASM [None]
  - TACHYCARDIA [None]
